FAERS Safety Report 12127610 (Version 3)
Quarter: 2016Q2

REPORT INFORMATION
  Report Type: Spontaneous
  Country: DE (occurrence: DE)
  Receive Date: 20160229
  Receipt Date: 20160401
  Transmission Date: 20160815
  Serious: Yes (Hospitalization, Other)
  Sender: FDA-Public Use
  Company Number: DE-GILEAD-2016-0200327

PATIENT
  Age: 33 Year
  Sex: Female
  Weight: 70 kg

DRUGS (12)
  1. ZYDELIG [Suspect]
     Active Substance: IDELALISIB
     Indication: B-CELL LYMPHOMA
     Dosage: 150 MG, BID
     Route: 048
     Dates: start: 20151218, end: 20160116
  2. RISPERIDON [Concomitant]
     Active Substance: RISPERIDONE
     Dosage: 3 ML, UNK
     Route: 048
  3. BARACLUDE [Concomitant]
     Active Substance: ENTECAVIR
     Dosage: 0.5 UNK, UNK
     Route: 048
  4. CARBAMAZEPIN [Concomitant]
     Active Substance: CARBAMAZEPINE
     Dosage: UNK
     Route: 048
  5. FOLIC ACID. [Concomitant]
     Active Substance: FOLIC ACID
  6. PANTOPRAZOL [Concomitant]
     Active Substance: PANTOPRAZOLE SODIUM
     Dosage: 40 UNK, UNK
     Route: 048
  7. MIRTAZAPIN [Concomitant]
     Active Substance: MIRTAZAPINE
     Route: 048
  8. TARGIN [Concomitant]
     Active Substance: NALOXONE HYDROCHLORIDE\OXYCODONE HYDROCHLORIDE
     Indication: PAIN
     Route: 048
  9. ZYDELIG [Suspect]
     Active Substance: IDELALISIB
     Dosage: 150 MG, BID
     Route: 048
     Dates: start: 20160125
  10. L-THYROXIN [Concomitant]
     Active Substance: LEVOTHYROXINE SODIUM
  11. DICLOFENAC [Concomitant]
     Active Substance: DICLOFENAC
  12. COTRIM D.S. [Concomitant]
     Active Substance: SULFAMETHOXAZOLE\TRIMETHOPRIM

REACTIONS (3)
  - Abscess neck [Recovering/Resolving]
  - Disease progression [Unknown]
  - Cellulitis [Recovering/Resolving]

NARRATIVE: CASE EVENT DATE: 20160116
